FAERS Safety Report 9612433 (Version 1)
Quarter: 2013Q4

REPORT INFORMATION
  Report Type: Spontaneous
  Country: US (occurrence: US)
  Receive Date: 20131010
  Receipt Date: 20131010
  Transmission Date: 20140711
  Serious: No
  Sender: FDA-Public Use
  Company Number: US-009507513-1310USA001412

PATIENT
  Age: 35 Year
  Sex: Female

DRUGS (3)
  1. NUVARING [Suspect]
     Indication: CONTRACEPTION
     Dosage: UNK
     Route: 067
     Dates: start: 200109
  2. PREDNISONE [Suspect]
     Route: 048
  3. OMNICEF [Suspect]

REACTIONS (2)
  - Sinusitis [Recovering/Resolving]
  - Metrorrhagia [Recovering/Resolving]
